FAERS Safety Report 15161027 (Version 1)
Quarter: 2018Q3

REPORT INFORMATION
  Report Type: Spontaneous
  Country: US (occurrence: US)
  Receive Date: 20180718
  Receipt Date: 20180718
  Transmission Date: 20181010
  Serious: Yes (Other)
  Sender: FDA-Public Use
  Company Number: US-ROCHE-2155540

PATIENT
  Sex: Female

DRUGS (2)
  1. ADDERALL [Concomitant]
     Active Substance: AMPHETAMINE ASPARTATE\AMPHETAMINE SULFATE\DEXTROAMPHETAMINE SACCHARATE\DEXTROAMPHETAMINE SULFATE
  2. KLONOPIN [Suspect]
     Active Substance: CLONAZEPAM
     Indication: POST-ANOXIC MYOCLONUS
     Route: 065

REACTIONS (14)
  - Amnesia [Not Recovered/Not Resolved]
  - Gait disturbance [Unknown]
  - Fall [Unknown]
  - Intentional product use issue [Unknown]
  - Angle closure glaucoma [Recovered/Resolved]
  - Musculoskeletal pain [Not Recovered/Not Resolved]
  - Renal disorder [Unknown]
  - Dry eye [Not Recovered/Not Resolved]
  - Memory impairment [Not Recovered/Not Resolved]
  - Disturbance in attention [Unknown]
  - Photosensitivity reaction [Not Recovered/Not Resolved]
  - Off label use [Unknown]
  - Back pain [Not Recovered/Not Resolved]
  - Eye irritation [Not Recovered/Not Resolved]
